FAERS Safety Report 19164388 (Version 1)
Quarter: 2021Q2

REPORT INFORMATION
  Report Type: Spontaneous
  Country: US (occurrence: US)
  Receive Date: 20210421
  Receipt Date: 20210421
  Transmission Date: 20210717
  Serious: Yes (Hospitalization)
  Sender: FDA-Public Use
  Company Number: US-FRESENIUS KABI-FK202103970

PATIENT
  Age: 76 Year
  Sex: Female
  Weight: 70.9 kg

DRUGS (13)
  1. SODIUM CHLORIDE. [Concomitant]
     Active Substance: SODIUM CHLORIDE
     Indication: PRODUCT USED FOR UNKNOWN INDICATION
     Dosage: SODIUM CHLORIDE (NS, PRIME BAG, IVPB)?CONTINUOUS INFUSIONS
     Route: 065
     Dates: start: 20210319
  2. ONDANSETRON [Concomitant]
     Active Substance: ONDANSETRON
     Indication: NAUSEA
     Route: 048
  3. ACETYLSALICYLIC ACID [Concomitant]
     Active Substance: ASPIRIN
     Indication: PRODUCT USED FOR UNKNOWN INDICATION
     Dosage: SUBSTITUTION ALLOWED
     Route: 065
  4. INSULIN GLARGINE [Concomitant]
     Active Substance: INSULIN GLARGINE
     Indication: PRODUCT USED FOR UNKNOWN INDICATION
     Dosage: BASAGLAR KWIKPEN 100 UNITS/ML SUBCUTANEOUS SOLUTION, SUBSTITUTION ALLOWED
     Route: 058
  5. LOVASTATIN. [Concomitant]
     Active Substance: LOVASTATIN
     Indication: PRODUCT USED FOR UNKNOWN INDICATION
     Route: 065
  6. PROCHLORPERAZINE. [Concomitant]
     Active Substance: PROCHLORPERAZINE
     Indication: PRODUCT USED FOR UNKNOWN INDICATION
     Dosage: 10 MG ORAL TABLET, SUBSTITUTION ALLOWED
     Route: 048
  7. ATENOLOL. [Concomitant]
     Active Substance: ATENOLOL
     Indication: PRODUCT USED FOR UNKNOWN INDICATION
     Route: 048
  8. INSULIN ASPART [Concomitant]
     Active Substance: INSULIN ASPART
     Indication: PRODUCT USED FOR UNKNOWN INDICATION
     Dosage: 100 UNITS/ML SUBCUTANEOUS SOLUTION, SUBSTITUTION ALLOWED
     Route: 058
  9. TRAMADOL. [Concomitant]
     Active Substance: TRAMADOL
     Indication: PAIN
     Dosage: 50 MG ORAL TABLET, SUBSTITUTION ALLOWED
     Route: 048
  10. CISPLATIN (MANUFACTURER UNKNOWN) [Suspect]
     Active Substance: CISPLATIN
     Indication: PRODUCT USED FOR UNKNOWN INDICATION
     Dosage: 60 MG/M2/DOSE, MONTHLY
     Dates: start: 20210319
  11. VENLAFAXINE [Concomitant]
     Active Substance: VENLAFAXINE HYDROCHLORIDE
     Indication: PRODUCT USED FOR UNKNOWN INDICATION
     Dosage: 75 MG ORAL TABLET
     Route: 048
  12. PALBOCICLIB [Suspect]
     Active Substance: PALBOCICLIB
     Dosage: REGIMEN B: IV ON DAYS 2 AND 8 OF CYCLES 2 AND 4 (APPROXIMATE)?(LAST DOSE RECEIVED BEFORE THE EVENT W
     Route: 042
  13. PALBOCICLIB [Suspect]
     Active Substance: PALBOCICLIB
     Indication: PRODUCT USED FOR UNKNOWN INDICATION
     Dosage: 100 MG, DAILY
     Dates: start: 20210320

REACTIONS (1)
  - Infection [Not Recovered/Not Resolved]

NARRATIVE: CASE EVENT DATE: 20210326
